FAERS Safety Report 9483007 (Version 1)
Quarter: 2013Q3

REPORT INFORMATION
  Report Type: Spontaneous
  Country: US (occurrence: US)
  Receive Date: 20130828
  Receipt Date: 20130828
  Transmission Date: 20140515
  Serious: Yes (Hospitalization)
  Sender: FDA-Public Use
  Company Number: US-AMGEN-US072094

PATIENT
  Age: 66 Year
  Sex: Female

DRUGS (4)
  1. ENBREL [Suspect]
     Indication: RHEUMATOID ARTHRITIS
     Dosage: 25 MG, 2 TIMES/WK
     Route: 058
     Dates: start: 19990101
  2. AZATHIOPRINE [Concomitant]
  3. CELECOXIB [Concomitant]
  4. PREDNISONE [Concomitant]

REACTIONS (4)
  - Renal failure [Unknown]
  - Pneumonia [Unknown]
  - Pancreatitis [Unknown]
  - Staphylococcal infection [Unknown]
